FAERS Safety Report 20751884 (Version 1)
Quarter: 2022Q2

REPORT INFORMATION
  Report Type: Spontaneous
  Country: US (occurrence: US)
  Receive Date: 20220426
  Receipt Date: 20220426
  Transmission Date: 20220721
  Serious: No
  Sender: FDA-Public Use
  Company Number: US-PFIZER INC-202101112415

PATIENT
  Age: 61 Year
  Sex: Female
  Weight: 72.12 kg

DRUGS (1)
  1. GABAPENTIN [Suspect]
     Active Substance: GABAPENTIN
     Indication: Neuropathy peripheral
     Dosage: UNK

REACTIONS (7)
  - Drug ineffective [Unknown]
  - Intentional product misuse [Unknown]
  - Feeling abnormal [Unknown]
  - Malaise [Unknown]
  - Confusional state [Unknown]
  - Hypoglycaemia [Unknown]
  - Nervousness [Unknown]
